FAERS Safety Report 10230437 (Version 1)
Quarter: 2014Q2

REPORT INFORMATION
  Report Type: Spontaneous
  Country: US (occurrence: None)
  Receive Date: 20140610
  Receipt Date: 20140610
  Transmission Date: 20141212
  Serious: Yes (Other)
  Sender: FDA-Public Use
  Company Number: None

PATIENT
  Age: 35 Year
  Sex: Female
  Weight: 60.78 kg

DRUGS (1)
  1. ADDERALL [Suspect]
     Indication: ATTENTION DEFICIT/HYPERACTIVITY DISORDER
     Dosage: ADDERALL, BID, ORAL
     Route: 048
     Dates: start: 20140424, end: 20140524

REACTIONS (4)
  - Product substitution issue [None]
  - Drug ineffective [None]
  - Fatigue [None]
  - Irritability [None]
